FAERS Safety Report 7993233 (Version 5)
Quarter: 2015Q1

REPORT INFORMATION
  Report Type: Report from Study
  Country: FR (occurrence: FR)
  Receive Date: 20110616
  Receipt Date: 20150129
  Transmission Date: 20150721
  Serious: Yes (Death, Hospitalization, Other)
  Sender: FDA-Public Use
  Company Number: FR-MPIJNJ-2011-02453

PATIENT

DRUGS (9)
  1. ZESTORETIC [Concomitant]
     Active Substance: HYDROCHLOROTHIAZIDE\LISINOPRIL
     Indication: HYPERTENSION
     Dosage: UNK
  2. VELITEN [Concomitant]
  3. VELCADE [Suspect]
     Active Substance: BORTEZOMIB
     Indication: WALDENSTROM^S MACROGLOBULINAEMIA
     Dosage: 2.6 MG, UNK
     Route: 042
     Dates: start: 20100921, end: 20110114
  4. XATRAL [Concomitant]
     Active Substance: ALFUZOSIN
  5. ZYLORIC [Concomitant]
     Active Substance: ALLOPURINOL
  6. DEXAMETHASONE. [Concomitant]
     Active Substance: DEXAMETHASONE
     Indication: WALDENSTROM^S MACROGLOBULINAEMIA
     Dosage: 20 MG, UNK
     Route: 048
     Dates: start: 20101102, end: 20110115
  7. ASPEGIC [Concomitant]
     Active Substance: ASPIRIN DL-LYSINE
  8. CHONDROSULF [Concomitant]
     Active Substance: CHONDROITIN SULFATE (CHICKEN)
  9. AVODART [Concomitant]
     Active Substance: DUTASTERIDE

REACTIONS (3)
  - Death [Fatal]
  - Ischaemic stroke [Unknown]
  - Restless legs syndrome [Not Recovered/Not Resolved]

NARRATIVE: CASE EVENT DATE: 201102
